FAERS Safety Report 14713949 (Version 1)
Quarter: 2018Q2

REPORT INFORMATION
  Report Type: Spontaneous
  Country: US (occurrence: US)
  Receive Date: 20180404
  Receipt Date: 20180404
  Transmission Date: 20180711
  Serious: No
  Sender: FDA-Public Use
  Company Number: US-BAYER-2018-056624

PATIENT
  Age: 7 Year
  Sex: Male
  Weight: 29 kg

DRUGS (2)
  1. MIRALAX [Suspect]
     Active Substance: POLYETHYLENE GLYCOL 3350
     Indication: GASTROINTESTINAL DISORDER
     Dosage: 1 DOSE DAILY DOSE
     Route: 048
     Dates: start: 20180315
  2. MULTIVITAMINS W/FLUORIDE [Concomitant]

REACTIONS (5)
  - Product use issue [Unknown]
  - Wrong technique in product usage process [None]
  - Circumstance or information capable of leading to medication error [None]
  - Inappropriate schedule of drug administration [Unknown]
  - Product taste abnormal [None]

NARRATIVE: CASE EVENT DATE: 20180315
